FAERS Safety Report 8588733 (Version 2)
Quarter: 2012Q4

REPORT INFORMATION
  Report Type: 
  Country: US (occurrence: US)
  Receive Date: 20120531
  Receipt Date: 20120830
  Transmission Date: 20130627
  Serious: No
  Sender: FDA-Public Use
  Company Number: US-B.I. PHARMACEUTICALS,INC./RIDGEFIELD-2012-BP-11423BP

PATIENT
  Age: 57 Year
  Sex: Male

DRUGS (9)
  1. PRADAXA [Suspect]
     Indication: ATRIAL FIBRILLATION
     Dosage: 300 mg
     Route: 048
     Dates: start: 201205
  2. DIAZEPAM [Concomitant]
     Dosage: 10 mg
     Route: 048
  3. DIGOXIN [Concomitant]
     Dosage: 0.125 mg
     Route: 048
     Dates: start: 2009
  4. METOPROLOL [Concomitant]
     Dosage: 50 mg
     Route: 048
     Dates: start: 2009
  5. MULTAQ [Concomitant]
     Indication: ATRIAL FIBRILLATION
     Dosage: 400 mg
     Route: 048
     Dates: start: 2009
  6. FLEXERIL [Concomitant]
     Indication: MUSCULOSKELETAL STIFFNESS
     Route: 048
     Dates: start: 2009
  7. BUSPIRONE [Concomitant]
     Indication: ANXIETY
     Dosage: 30 mg
     Route: 048
     Dates: start: 2009
  8. HYDROCODONE [Concomitant]
     Indication: MUSCULOSKELETAL PAIN
     Route: 048
     Dates: start: 201206
  9. TRAZODONE [Concomitant]
     Indication: SLEEP DISORDER
     Dosage: 50 mg
     Route: 048
     Dates: start: 2009

REACTIONS (6)
  - Nasal congestion [Not Recovered/Not Resolved]
  - Headache [Not Recovered/Not Resolved]
  - Headache [Not Recovered/Not Resolved]
  - Asthenia [Not Recovered/Not Resolved]
  - Musculoskeletal pain [Not Recovered/Not Resolved]
  - Impaired healing [Recovered/Resolved]
